APPROVED DRUG PRODUCT: SODIUM CHLORIDE 0.9% IN PLASTIC CONTAINER
Active Ingredient: SODIUM CHLORIDE
Strength: 450MG/50ML (9MG/ML)
Dosage Form/Route: SOLUTION;INJECTION
Application: N018803 | Product #003 | TE Code: AP
Applicant: HOSPIRA INC
Approved: Oct 29, 1982 | RLD: Yes | RS: Yes | Type: RX